FAERS Safety Report 11717133 (Version 1)
Quarter: 2015Q4

REPORT INFORMATION
  Report Type: Spontaneous
  Country: FR (occurrence: FR)
  Receive Date: 20151109
  Receipt Date: 20151109
  Transmission Date: 20160304
  Serious: Yes (Hospitalization, Other)
  Sender: FDA-Public Use
  Company Number: FR-ELI_LILLY_AND_COMPANY-FR201510008533

PATIENT
  Sex: Male

DRUGS (16)
  1. PRIMPERAN [Concomitant]
     Active Substance: METOCLOPRAMIDE HYDROCHLORIDE
     Dosage: 10 MG, UNKNOWN
  2. ALIMTA [Suspect]
     Active Substance: PEMETREXED DISODIUM
     Indication: LUNG ADENOCARCINOMA METASTATIC
     Dosage: UNK, CYCLICAL
     Route: 042
  3. SOLUPRED                           /00016201/ [Concomitant]
     Active Substance: PREDNISOLONE
     Dosage: 50 MG, UNKNOWN
  4. DOLIPRANE [Concomitant]
     Active Substance: ACETAMINOPHEN
     Dosage: 1 G, EVERY 6 HRS
  5. ISOPTINE [Concomitant]
     Active Substance: VERAPAMIL HYDROCHLORIDE
     Dosage: UNK, UNKNOWN
  6. SPECIAFOLDINE [Concomitant]
     Active Substance: FOLIC ACID
     Dosage: 0.4 MG, EACH MORNING
  7. METFORMINE [Concomitant]
     Active Substance: METFORMIN HYDROCHLORIDE
     Dosage: 850 MG, EACH MORNING
  8. LYRICA [Concomitant]
     Active Substance: PREGABALIN
     Dosage: 3 DF, QD
  9. INNOHEP [Concomitant]
     Active Substance: TINZAPARIN SODIUM
     Dosage: 0.6 ML, QD
  10. ALIMTA [Suspect]
     Active Substance: PEMETREXED DISODIUM
     Dosage: 375 MG/M2, CYCLICAL
     Route: 042
     Dates: end: 20150903
  11. CISPLATIN ACCORD [Suspect]
     Active Substance: CISPLATIN
     Indication: LUNG ADENOCARCINOMA METASTATIC
     Dosage: UNK, CYCLICAL
     Route: 042
  12. XATRAL [Concomitant]
     Active Substance: ALFUZOSIN
     Dosage: 1 DF, EACH MORNING
  13. ACTISKENAN [Concomitant]
     Active Substance: MORPHINE SULFATE
     Dosage: 10 MG, EVERY 4HOURS IF PAIN
  14. CISPLATIN ACCORD [Suspect]
     Active Substance: CISPLATIN
     Dosage: 56.25 MG/M2, CYCLICAL
     Route: 042
     Dates: end: 20150903
  15. DUROGESIC [Concomitant]
     Active Substance: FENTANYL
     Dosage: 75 UG, EVERY 72HOURS
  16. EMEND [Concomitant]
     Active Substance: APREPITANT
     Dosage: 80 MG, UNKNOWN

REACTIONS (6)
  - Neutropenia [Unknown]
  - Lymphopenia [Recovered/Resolved]
  - Pneumonia [Recovered/Resolved]
  - Respiratory alkalosis [Unknown]
  - Hypoxia [Unknown]
  - General physical health deterioration [Unknown]
